FAERS Safety Report 17655408 (Version 7)
Quarter: 2020Q3

REPORT INFORMATION
  Report Type: Spontaneous
  Country: US (occurrence: US)
  Receive Date: 20200410
  Receipt Date: 20200903
  Transmission Date: 20201102
  Serious: No
  Sender: FDA-Public Use
  Company Number: US-PFIZER INC-2020141017

PATIENT
  Age: 66 Year
  Sex: Female
  Weight: 74 kg

DRUGS (11)
  1. DULOXETINE. [Concomitant]
     Active Substance: DULOXETINE
     Indication: BLOOD PRESSURE ABNORMAL
     Dosage: 30 MG, 2X/DAY (TWO CAPSULE, ONE IN MORNING ONE IN NIGHT)
  2. LYRICA [Suspect]
     Active Substance: PREGABALIN
     Indication: HYPOAESTHESIA
  3. LYRICA [Suspect]
     Active Substance: PREGABALIN
     Indication: PAIN
     Dosage: 100 MG, 2X/DAY (ONE AT THE NIGHT AND ONE IN THE MORNING)
     Dates: start: 2009
  4. PERCOCET [Concomitant]
     Active Substance: ACETAMINOPHEN\OXYCODONE HYDROCHLORIDE
     Indication: PAIN
     Dosage: UNK, 1X/DAY
  5. OXYCODONE [Suspect]
     Active Substance: OXYCODONE
     Dosage: UNK
  6. LYRICA [Suspect]
     Active Substance: PREGABALIN
     Indication: PROCEDURAL PAIN
     Dosage: UNK
  7. LYRICA [Suspect]
     Active Substance: PREGABALIN
     Indication: POLYNEUROPATHY
  8. HYDROCODONE [Suspect]
     Active Substance: HYDROCODONE
     Indication: PAIN
  9. PERCOCET [Concomitant]
     Active Substance: ACETAMINOPHEN\OXYCODONE HYDROCHLORIDE
     Indication: MUSCLE SPASMS
  10. LYRICA [Suspect]
     Active Substance: PREGABALIN
     Indication: NEUROPATHY PERIPHERAL
  11. HYDROCODONE [Suspect]
     Active Substance: HYDROCODONE
     Indication: MUSCLE SPASMS
     Dosage: UNK(7.5/325 MG)

REACTIONS (9)
  - Intentional product misuse [Unknown]
  - Therapeutic product effect delayed [Unknown]
  - Muscle spasms [Unknown]
  - Hypertension [Unknown]
  - Blood cholesterol increased [Unknown]
  - Anxiety [Unknown]
  - Drug ineffective [Unknown]
  - Pain [Unknown]
  - Panic reaction [Unknown]

NARRATIVE: CASE EVENT DATE: 2009
